FAERS Safety Report 16104037 (Version 2)
Quarter: 2019Q2

REPORT INFORMATION
  Report Type: Spontaneous
  Country: DE (occurrence: DE)
  Receive Date: 20190322
  Receipt Date: 20190408
  Transmission Date: 20190711
  Serious: Yes (Other)
  Sender: FDA-Public Use
  Company Number: DE-AEGERION PHARMACEUTICAL, INC-AEGR004178

PATIENT

DRUGS (3)
  1. MYALEPT [Suspect]
     Active Substance: METRELEPTIN
     Dosage: 2 MG, QD
     Route: 058
     Dates: start: 20110812
  2. MYALEPT [Suspect]
     Active Substance: METRELEPTIN
     Dosage: 2.5 MG , QD (0.043 MG/KG/LBW).
     Dates: start: 20150909
  3. MYALEPT [Suspect]
     Active Substance: METRELEPTIN
     Indication: PRODUCT USED FOR UNKNOWN INDICATION
     Dosage: 1.2 MG, QD
     Route: 058
     Dates: start: 200906

REACTIONS (7)
  - Congenital urinary tract obstruction [Unknown]
  - Blood pressure ambulatory increased [Recovered/Resolved]
  - Hydronephrosis [Unknown]
  - Ureteric compression [Unknown]
  - Renal malposition [Unknown]
  - Weight decreased [Unknown]
  - Renal impairment [Unknown]

NARRATIVE: CASE EVENT DATE: 2009
